FAERS Safety Report 9550832 (Version 1)
Quarter: 2013Q3

REPORT INFORMATION
  Report Type: Spontaneous
  Country: US (occurrence: US)
  Receive Date: 20130924
  Receipt Date: 20130924
  Transmission Date: 20140515
  Serious: No
  Sender: FDA-Public Use
  Company Number: US-SANOFI-AVENTIS-2013SA054130

PATIENT
  Sex: Male

DRUGS (7)
  1. AUBAGIO [Suspect]
     Indication: MULTIPLE SCLEROSIS
     Route: 048
     Dates: start: 20130223
  2. VITAMIN D [Concomitant]
  3. OXYCODONE [Concomitant]
     Route: 065
  4. VITAMIN B12 [Concomitant]
     Route: 048
  5. DESMOPRESSIN [Concomitant]
     Indication: BLADDER DYSFUNCTION
     Route: 065
  6. FESOTERODINE [Concomitant]
     Route: 065
  7. TAMSULOSIN [Concomitant]
     Indication: BLADDER DYSFUNCTION
     Route: 065

REACTIONS (2)
  - Blood immunoglobulin G decreased [Not Recovered/Not Resolved]
  - Drug ineffective [Unknown]
